FAERS Safety Report 6259873-2 (Version None)
Quarter: 2009Q3

REPORT INFORMATION
  Report Type: 
  Country: None (occurrence: None)
  Receive Date: 20090706
  Receipt Date: 20090706
  Transmission Date: 20100115
  Serious: Yes (Other)
  Sender: FDA-Public Use
  Company Number: None

PATIENT

DRUGS (2)
  1. DOXYCYCLINE HYCLATE [Suspect]
     Indication: UPPER RESPIRATORY TRACT INFECTION
     Dosage: 100MG 1 TAB 2X'S A DAY PO
     Route: 048
     Dates: start: 20070814, end: 20070816
  2. HYDROXYZINE [Concomitant]

REACTIONS (10)
  - BLISTER [None]
  - CHEILITIS [None]
  - DISCOMFORT [None]
  - DRUG INEFFECTIVE [None]
  - FEELING HOT [None]
  - GAIT DISTURBANCE [None]
  - HYPERSENSITIVITY [None]
  - LIP SWELLING [None]
  - PAIN [None]
  - PARAESTHESIA [None]
